FAERS Safety Report 7005088-X (Version None)
Quarter: 2010Q3

REPORT INFORMATION
  Report Type: 
  Country: None (occurrence: None)
  Receive Date: 20100921
  Receipt Date: 20100910
  Transmission Date: 20110219
  Serious: Yes (Hospitalization, Other)
  Sender: FDA-Public Use
  Company Number: PHHY2010US60534

PATIENT
  Sex: Female

DRUGS (6)
  1. SANDOSTATIN LAR [Suspect]
     Indication: ACROMEGALY
     Dosage: 10 MG, UNK
     Dates: start: 20100909
  2. LEVOTHYROXINE SODIUM [Concomitant]
     Dosage: 78 MCG QD
  3. SIMVASTATIN [Concomitant]
  4. METFORMIN [Concomitant]
     Dosage: 500 MG, QD
  5. ZETIA [Concomitant]
     Dosage: 10 MG, QD
  6. ESTROGEN NOS [Concomitant]

REACTIONS (3)
  - CHEST PAIN [None]
  - CHOLELITHIASIS [None]
  - LIVER FUNCTION TEST ABNORMAL [None]
